FAERS Safety Report 6478576-2 (Version None)
Quarter: 2009Q4

REPORT INFORMATION
  Report Type: 
  Country: None (occurrence: None)
  Receive Date: 20091207
  Receipt Date: 20091125
  Transmission Date: 20100525
  Serious: Yes (Death)
  Sender: FDA-Public Use
  Company Number: US-ELI_LILLY_AND_COMPANY-US200911006610

PATIENT
  Sex: Male

DRUGS (20)
  1. FORTEO [Suspect]
     Dates: start: 20090701
  2. OMEPRAZOLE [Concomitant]
  3. FINASTERIDE [Concomitant]
  4. TRAZODONE [Concomitant]
  5. FUROSEMIDE [Concomitant]
  6. ISOSORBIDE MONONITRATE [Concomitant]
  7. FOSINOPRIL SODIUM [Concomitant]
  8. SPIRONOLACTONE [Concomitant]
  9. DICLOFENAC [Concomitant]
  10. CLOPIDOGREL BISULFATE [Concomitant]
  11. ASPIRIN [Concomitant]
  12. METOPROLOL [Concomitant]
  13. FLUOXETINE [Concomitant]
  14. NITROGLYCERIN [Concomitant]
  15. NOVOLIN 70/30 [Concomitant]
  16. ROSUVASTATIN [Concomitant]
  17. HYDROCODONE [Concomitant]
  18. ALBUTEROL [Concomitant]
  19. POTASSIUM CHLORIDE [Concomitant]
  20. LORAZEPAM [Concomitant]

REACTIONS (3)
  - BONE PAIN [None]
  - CARDIAC ARREST [None]
  - MYALGIA [None]
